FAERS Safety Report 24783744 (Version 1)
Quarter: 2024Q4

REPORT INFORMATION
  Report Type: Spontaneous
  Country: FR (occurrence: FR)
  Receive Date: 20241227
  Receipt Date: 20241227
  Transmission Date: 20250115
  Serious: Yes (Other)
  Sender: TEVA
  Company Number: None

PATIENT
  Age: 84 Year
  Sex: Female
  Weight: 54 kg

DRUGS (9)
  1. RAMIPRIL [Suspect]
     Active Substance: RAMIPRIL
     Indication: Wrong patient
     Dosage: TIME INTERVAL: TOTAL
     Route: 048
     Dates: start: 20241106, end: 20241106
  2. AMLODIPINE BESYLATE [Suspect]
     Active Substance: AMLODIPINE BESYLATE
     Indication: Hypertension
     Dosage: TIME INTERVAL: TOTAL
     Route: 048
     Dates: start: 20241106, end: 20241106
  3. ELIQUIS [Suspect]
     Active Substance: APIXABAN
     Indication: Wrong patient
     Dosage: TIME INTERVAL: TOTAL
     Route: 048
     Dates: start: 20241106, end: 20241106
  4. SERTRALINE [Suspect]
     Active Substance: SERTRALINE HYDROCHLORIDE
     Indication: Wrong patient
     Dosage: TIME INTERVAL: TOTAL: SERTRALINE BASE
     Route: 048
     Dates: start: 20241106, end: 20241106
  5. TRAMADOL [Suspect]
     Active Substance: TRAMADOL
     Indication: Wrong patient
     Dosage: TIME INTERVAL: TOTAL: TRAMADOL BASE
     Route: 048
     Dates: start: 20241106, end: 20241106
  6. TIAPRIDE HYDROCHLORIDE [Suspect]
     Active Substance: TIAPRIDE HYDROCHLORIDE
     Indication: Wrong patient
     Dosage: TIME INTERVAL: TOTAL
     Route: 048
     Dates: start: 20241106, end: 20241106
  7. BISOPROLOL [Suspect]
     Active Substance: BISOPROLOL
     Indication: Wrong patient
     Dosage: TIME INTERVAL: TOTAL: BISOPROLOL (HEMIFUMARATE)
     Route: 048
     Dates: start: 20241106, end: 20241106
  8. CYAMEMAZINE [Suspect]
     Active Substance: CYAMEMAZINE
     Indication: Wrong patient
     Dosage: TIME INTERVAL: TOTAL
     Route: 048
     Dates: start: 20241106, end: 20241106
  9. HALDOL [Suspect]
     Active Substance: HALOPERIDOL
     Indication: Wrong patient
     Dosage: TIME INTERVAL: TOTAL
     Route: 048
     Dates: start: 20241106, end: 20241106

REACTIONS (5)
  - Malaise [Recovered/Resolved]
  - Wrong patient [Recovered/Resolved]
  - Dysarthria [Recovered/Resolved]
  - Electrocardiogram QT prolonged [Recovered/Resolved]
  - Bradycardia [Recovered/Resolved]

NARRATIVE: CASE EVENT DATE: 20241106
